FAERS Safety Report 4674802-0 (Version None)
Quarter: 2005Q2

REPORT INFORMATION
  Report Type: 
  Country: None (occurrence: None)
  Receive Date: 20050525
  Receipt Date: 20050517
  Transmission Date: 20051028
  Serious: Yes (Hospitalization)
  Sender: FDA-Public Use
  Company Number: 230561K05USA

PATIENT
  Age: 52 Year
  Sex: Female

DRUGS (5)
  1. REBIF [Suspect]
     Indication: MULTIPLE SCLEROSIS
     Dosage: 44 MCG, 3 IN 1 WEEKS, SUBCUTANEOUS
     Route: 058
     Dates: start: 20020429, end: 20050429
  2. NATURAL COMPOUND PROGESTERONE/ESTROGEN (PROGESTERONE W/ESTROGENS/) [Concomitant]
  3. XANAX [Concomitant]
  4. MAALOX (MAALOX) [Concomitant]
  5. IMITREX [Concomitant]

REACTIONS (7)
  - ALOPECIA [None]
  - ENDOMETRIAL HYPERPLASIA [None]
  - PRECANCEROUS CELLS PRESENT [None]
  - UTERINE LEIOMYOMA [None]
  - UTERINE POLYP [None]
  - VISION BLURRED [None]
  - VISUAL ACUITY REDUCED [None]
